FAERS Safety Report 26144086 (Version 1)
Quarter: 2025Q4

REPORT INFORMATION
  Report Type: Spontaneous
  Country: EU (occurrence: EU)
  Receive Date: 20251211
  Receipt Date: 20251211
  Transmission Date: 20260117
  Serious: Yes (Life-Threatening, Hospitalization, Other)
  Sender: RANBAXY
  Company Number: EU-MINISAL02-1056399

PATIENT
  Age: 68 Year
  Sex: Male

DRUGS (4)
  1. OXALIPLATIN [Suspect]
     Active Substance: OXALIPLATIN
     Indication: Gastric cancer stage IV
     Dosage: FOLFOX REGIMEN 6 FULL DOSES
     Route: 042
     Dates: start: 20250205, end: 20250708
  2. OPDIVO [Suspect]
     Active Substance: NIVOLUMAB
     Indication: Gastric cancer stage IV
     Dosage: 240 MG EVERY 14 DAYS COMBINED WITH FOLFOX 6
     Route: 042
     Dates: start: 20250305, end: 20250708
  3. FLUOROURACIL [Suspect]
     Active Substance: FLUOROURACIL
     Indication: Gastric cancer stage IV
     Dosage: FOLFOX 6
     Route: 042
     Dates: start: 20250205, end: 20250708
  4. TINZAPARIN SODIUM [Suspect]
     Active Substance: TINZAPARIN SODIUM
     Indication: Device related thrombosis
     Dosage: 18,000 U/DAY
     Route: 058
     Dates: start: 20250701

REACTIONS (6)
  - Haematemesis [Recovered/Resolved with Sequelae]
  - Shock haemorrhagic [Recovered/Resolved]
  - Bacterial sepsis [Recovering/Resolving]
  - Anastomotic ulcer haemorrhage [Recovered/Resolved with Sequelae]
  - Pyrexia [Recovering/Resolving]
  - Blood loss anaemia [Not Recovered/Not Resolved]

NARRATIVE: CASE EVENT DATE: 20250825
